FAERS Safety Report 16538606 (Version 1)
Quarter: 2019Q3

REPORT INFORMATION
  Report Type: Report from Study
  Country: US (occurrence: US)
  Receive Date: 20190708
  Receipt Date: 20190708
  Transmission Date: 20191004
  Serious: Yes (Hospitalization, Other)
  Sender: FDA-Public Use
  Company Number: US-ROCHE-2346604

PATIENT
  Age: 77 Year
  Sex: Female

DRUGS (1)
  1. ALECENSA [Suspect]
     Active Substance: ALECTINIB HYDROCHLORIDE
     Indication: LUNG NEOPLASM MALIGNANT
     Dosage: ONGOING UNKNOWN
     Route: 065

REACTIONS (7)
  - Thrombosis [Unknown]
  - Mental disorder [Unknown]
  - Muscle injury [Unknown]
  - Peripheral nerve injury [Unknown]
  - Fall [Unknown]
  - Blood sodium decreased [Unknown]
  - Peripheral swelling [Unknown]

NARRATIVE: CASE EVENT DATE: 20190324
